FAERS Safety Report 18598795 (Version 1)
Quarter: 2020Q4

REPORT INFORMATION
  Report Type: Spontaneous
  Country: US (occurrence: US)
  Receive Date: 20201210
  Receipt Date: 20201210
  Transmission Date: 20210114
  Serious: Yes (Hospitalization, Other)
  Sender: FDA-Public Use
  Company Number: US-ABBVIE-20K-163-3682116-00

PATIENT
  Age: 33 Year
  Sex: Female

DRUGS (1)
  1. LUPRON [Suspect]
     Active Substance: LEUPROLIDE ACETATE
     Indication: BREAST CANCER
     Route: 030
     Dates: start: 20190424

REACTIONS (7)
  - Pathological fracture [Unknown]
  - Dyspnoea [Unknown]
  - Pleural effusion [Unknown]
  - Back pain [Not Recovered/Not Resolved]
  - Lung infiltration [Unknown]
  - Arthralgia [Not Recovered/Not Resolved]
  - Hypoxia [Unknown]

NARRATIVE: CASE EVENT DATE: 2019
